FAERS Safety Report 5912533-7 (Version None)
Quarter: 2008Q4

REPORT INFORMATION
  Report Type: 
  Country: None (occurrence: None)
  Receive Date: 20081008
  Receipt Date: 20081006
  Transmission Date: 20090506
  Serious: Yes (Death)
  Sender: FDA-Public Use
  Company Number: JP-BRISTOL-MYERS SQUIBB COMPANY-14360903

PATIENT
  Age: 70 Year
  Sex: Male

DRUGS (2)
  1. PARAPLATIN [Suspect]
     Indication: SMALL CELL LUNG CANCER STAGE UNSPECIFIED
     Dosage: FIRST DOSE: 18-JUN-2008
     Route: 041
     Dates: start: 20080716, end: 20080716
  2. TOPOTECIN [Suspect]
     Indication: SMALL CELL LUNG CANCER STAGE UNSPECIFIED
     Dosage: FIRST DOSE: 18-JUN-08
     Route: 041
     Dates: start: 20080716, end: 20080716

REACTIONS (1)
  - INTERSTITIAL LUNG DISEASE [None]
